FAERS Safety Report 5339887-7 (Version None)
Quarter: 2007Q2

REPORT INFORMATION
  Report Type: 
  Country: None (occurrence: None)
  Receive Date: 20070529
  Receipt Date: 20070521
  Transmission Date: 20071010
  Serious: Yes (Death, Life-Threatening, Hospitalization)
  Sender: FDA-Public Use
  Company Number: 056-C5013-07050798

PATIENT
  Age: 69 Year
  Sex: Male
  Weight: 76 kg

DRUGS (4)
  1. CC-5013 (LENALIDOMIDE) (CAPSULES) [Suspect]
     Indication: MYELODYSPLASTIC SYNDROME
     Dosage: DAILY; ORAL
     Route: 048
     Dates: start: 20051216, end: 20070516
  2. CC-5013/PLACEBO (LENALIDOMIDE) (CAPSULES) [Suspect]
     Indication: MYELODYSPLASTIC SYNDROME
     Dosage: PER ORAL
     Route: 048
  3. PLATELETS TRANSFUSION (PLATELETS) [Concomitant]
  4. FLUOROQUINOLONE (FLUOROQUINOLONES) [Concomitant]

REACTIONS (15)
  - ACUTE RESPIRATORY DISTRESS SYNDROME [None]
  - ATRIAL FIBRILLATION [None]
  - BRONCHITIS [None]
  - CARDIAC ARREST [None]
  - COAGULOPATHY [None]
  - HAEMOPTYSIS [None]
  - HYPOXIA [None]
  - INFECTION [None]
  - LUNG DISORDER [None]
  - PROTHROMBIN TIME PROLONGED [None]
  - PULMONARY ALVEOLAR HAEMORRHAGE [None]
  - PULMONARY HYPERTENSION [None]
  - RESPIRATORY TRACT INFECTION BACTERIAL [None]
  - SEPSIS [None]
  - THROMBOCYTOPENIA [None]
